FAERS Safety Report 4774894-4 (Version None)
Quarter: 2005Q3

REPORT INFORMATION
  Report Type: 
  Country: None (occurrence: None)
  Receive Date: 20050921
  Receipt Date: 20050913
  Transmission Date: 20060218
  Serious: Yes (Hospitalization)
  Sender: FDA-Public Use
  Company Number: 200513044FR

PATIENT
  Age: 76 Year
  Sex: Female
  Weight: 110 kg

DRUGS (4)
  1. PROFENID [Suspect]
     Indication: ABDOMINAL PAIN
     Route: 048
     Dates: start: 20041103, end: 20041103
  2. AMAREL [Suspect]
     Indication: DIABETES MELLITUS NON-INSULIN-DEPENDENT
     Route: 048
     Dates: end: 20041105
  3. GLUCOPHAGE [Suspect]
     Indication: DIABETES MELLITUS NON-INSULIN-DEPENDENT
     Route: 048
     Dates: end: 20041105
  4. SPASFON [Suspect]
     Indication: ABDOMINAL PAIN
     Route: 048
     Dates: start: 20041103, end: 20041103

REACTIONS (12)
  - ACUTE RESPIRATORY DISTRESS SYNDROME [None]
  - ANURIA [None]
  - BACK PAIN [None]
  - CALCULUS URETERIC [None]
  - CULTURE URINE POSITIVE [None]
  - ESCHERICHIA INFECTION [None]
  - ESCHERICHIA SEPSIS [None]
  - PYELONEPHRITIS [None]
  - RENAL COLIC [None]
  - RENAL FAILURE [None]
  - RESPIRATORY FAILURE [None]
  - SEPTIC SHOCK [None]
